FAERS Safety Report 20128282 (Version 2)
Quarter: 2021Q4

REPORT INFORMATION
  Report Type: Spontaneous
  Country: CN (occurrence: CN)
  Receive Date: 20211129
  Receipt Date: 20211210
  Transmission Date: 20220303
  Serious: Yes (Hospitalization)
  Sender: FDA-Public Use
  Company Number: CN-TAKEDA-2021TJP122507

PATIENT
  Sex: Female
  Weight: 35 kg

DRUGS (2)
  1. ENANTONE LP [Suspect]
     Active Substance: LEUPROLIDE ACETATE
     Indication: Precocious puberty
     Dosage: 3.75 MILLIGRAM
     Route: 058
     Dates: start: 20210828, end: 20211023
  2. ENANTONE LP [Suspect]
     Active Substance: LEUPROLIDE ACETATE
     Route: 058

REACTIONS (6)
  - Dermatitis allergic [Recovering/Resolving]
  - Injection site erythema [Recovering/Resolving]
  - White blood cell count increased [Not Recovered/Not Resolved]
  - Protein urine [Not Recovered/Not Resolved]
  - Dermatitis allergic [Recovering/Resolving]
  - Allergic respiratory symptom [Unknown]

NARRATIVE: CASE EVENT DATE: 20210101
